FAERS Safety Report 11743163 (Version 1)
Quarter: 2015Q4

REPORT INFORMATION
  Report Type: Spontaneous
  Country: US (occurrence: US)
  Receive Date: 20151116
  Receipt Date: 20151116
  Transmission Date: 20160304
  Serious: Yes (Hospitalization, Disabling, Other)
  Sender: FDA-Public Use
  Company Number: US-ELI_LILLY_AND_COMPANY-US201511001435

PATIENT
  Sex: Female

DRUGS (4)
  1. HUMULIN N [Suspect]
     Active Substance: INSULIN HUMAN
     Indication: DIABETES MELLITUS
     Dosage: 25 U, EACH MORNING
     Route: 065
     Dates: start: 1986
  2. PREDNISONE. [Concomitant]
     Active Substance: PREDNISONE
     Indication: PRODUCT USED FOR UNKNOWN INDICATION
     Dosage: UNK
     Route: 065
     Dates: start: 2000
  3. INSULIN HUMAN [Suspect]
     Active Substance: INSULIN HUMAN
     Indication: DIABETES MELLITUS
     Dosage: 10 U, QID
     Route: 065
     Dates: start: 1995
  4. HUMULIN N [Suspect]
     Active Substance: INSULIN HUMAN
     Dosage: 35 U, EACH EVENING
     Route: 065
     Dates: start: 1986

REACTIONS (20)
  - Rotator cuff syndrome [Not Recovered/Not Resolved]
  - Wound infection [Unknown]
  - Neuropathy peripheral [Not Recovered/Not Resolved]
  - Headache [Not Recovered/Not Resolved]
  - Pain in jaw [Not Recovered/Not Resolved]
  - Chronic kidney disease [Not Recovered/Not Resolved]
  - Osteomyelitis [Unknown]
  - Blood glucose fluctuation [Unknown]
  - Anaphylactic shock [Unknown]
  - Myocardial infarction [Unknown]
  - Visual impairment [Not Recovered/Not Resolved]
  - Tremor [Not Recovered/Not Resolved]
  - Dysstasia [Not Recovered/Not Resolved]
  - Staphylococcal infection [Unknown]
  - Clostridium difficile infection [Unknown]
  - Arthritis [Not Recovered/Not Resolved]
  - Osteoporosis [Not Recovered/Not Resolved]
  - Pneumonia [Unknown]
  - Diabetic neuropathy [Not Recovered/Not Resolved]
  - Dysphagia [Not Recovered/Not Resolved]

NARRATIVE: CASE EVENT DATE: 1995
